FAERS Safety Report 7143600 (Version 2)
Quarter: 2013Q2

REPORT INFORMATION
  Report Type: Spontaneous
  Country: BR (occurrence: BR)
  Receive Date: 20091008
  Receipt Date: 20130426
  Transmission Date: 20140414
  Serious: Yes (Hospitalization, Other)
  Sender: FDA-Public Use
  Company Number: BR-ASTRAZENECA-2009SE17174

PATIENT
  Age: 63 Year
  Sex: Female
  Weight: 82.5 kg

DRUGS (10)
  1. CRESTOR [Suspect]
     Indication: BLOOD CHOLESTEROL INCREASED
     Route: 048
     Dates: start: 2007
  2. CRESTOR [Suspect]
     Indication: BLOOD CHOLESTEROL INCREASED
     Route: 048
     Dates: end: 2012
  3. BRILINTA [Suspect]
     Indication: CORONARY ARTERY OCCLUSION
     Route: 048
     Dates: start: 201207, end: 2012
  4. PANTOPRAZOLE [Concomitant]
     Indication: GASTROOESOPHAGEAL REFLUX DISEASE
     Route: 048
     Dates: start: 2005
  5. DIOVAN [Concomitant]
     Indication: HYPERTENSION
     Route: 048
     Dates: start: 2005
  6. NATRILIX SR [Concomitant]
     Indication: HYPERTENSION
     Dosage: OD
     Route: 048
     Dates: start: 2005
  7. INSULIN 40 U [Concomitant]
     Indication: DIABETES MELLITUS
     Dosage: 40 AT MORNING, 16 AT NIGHT
     Route: 058
     Dates: start: 2007
  8. BUFERIN CARDIO [Concomitant]
     Indication: HYPERTENSION
     Dosage: PRN
     Route: 048
     Dates: start: 2006
  9. ZOCOR [Concomitant]
     Indication: HYPERTENSION
     Route: 048
  10. ZETIA [Concomitant]
     Indication: BLOOD CHOLESTEROL INCREASED
     Route: 048
     Dates: start: 2012

REACTIONS (10)
  - Retinopathy [Not Recovered/Not Resolved]
  - Herpes zoster [Recovered/Resolved]
  - Coronary artery occlusion [Recovered/Resolved]
  - Cataract [Unknown]
  - Weight decreased [Recovered/Resolved]
  - Hypoaesthesia [Recovered/Resolved]
  - Tooth fracture [Recovered/Resolved]
  - Hepatic enzyme increased [Recovered/Resolved]
  - Pain in extremity [Recovered/Resolved]
  - Arthralgia [Recovered/Resolved]
